FAERS Safety Report 20786855 (Version 1)
Quarter: 2022Q2

REPORT INFORMATION
  Report Type: Spontaneous
  Country: US (occurrence: US)
  Receive Date: 20220505
  Receipt Date: 20220505
  Transmission Date: 20220721
  Serious: No
  Sender: FDA-Public Use
  Company Number: US-ORGANON-O2204USA001156

PATIENT
  Age: 52 Year
  Sex: Male

DRUGS (3)
  1. ZETIA [Suspect]
     Active Substance: EZETIMIBE
     Indication: High density lipoprotein
     Dosage: 10 MILLIGRAM, DAILY
     Route: 048
  2. ZOCOR [Suspect]
     Active Substance: SIMVASTATIN
     Indication: High density lipoprotein
     Dosage: 40 MILLIGRAM, DAILY
     Route: 048
  3. FENOFIBRATE [Suspect]
     Active Substance: FENOFIBRATE
     Indication: High density lipoprotein
     Dosage: 54 MG DAILY

REACTIONS (1)
  - Therapeutic product effect incomplete [Unknown]
